FAERS Safety Report 7043849-1 (Version None)
Quarter: 2010Q4

REPORT INFORMATION
  Report Type: 
  Country: None (occurrence: None)
  Receive Date: 20101008
  Receipt Date: 20101008
  Transmission Date: 20110411
  Serious: Yes (Hospitalization, Disabling, Other)
  Sender: FDA-Public Use
  Company Number: None

PATIENT
  Age: 10 Day
  Sex: Male
  Weight: 4.0824 kg

DRUGS (1)
  1. CONCENTRATED TYLENOL INFANT DROPS [Suspect]
     Indication: PAIN
     Dosage: FEW DROPS ONCE BUCCAL
     Route: 002
     Dates: start: 20100302, end: 20100302

REACTIONS (1)
  - PYLORIC STENOSIS [None]
